FAERS Safety Report 6054013-7 (Version None)
Quarter: 2009Q1

REPORT INFORMATION
  Report Type: 
  Country: None (occurrence: None)
  Receive Date: 20090127
  Receipt Date: 20090115
  Transmission Date: 20090719
  Serious: Yes (Death)
  Sender: FDA-Public Use
  Company Number: FR-PFIZER INC-2009159090

PATIENT
  Sex: Female
  Weight: 0.74 kg

DRUGS (10)
  1. VFEND [Suspect]
     Indication: CANDIDIASIS
     Dosage: 7 MG/KG, 2X/DAY
     Route: 048
     Dates: start: 20081111, end: 20081116
  2. PHYTOMENADIONE [Concomitant]
  3. RIFAMPICIN [Concomitant]
  4. AMPICILLIN SODIUM [Concomitant]
     Dates: start: 20081016
  5. CEFOTAXIME SODIUM [Concomitant]
     Dates: start: 20081016
  6. CEFOTAXIME SODIUM [Concomitant]
  7. VANCOMYCIN HYDROCHLORIDE [Concomitant]
     Dates: start: 20081028, end: 20081104
  8. VANCOMYCIN HYDROCHLORIDE [Concomitant]
     Dates: start: 20081105, end: 20081111
  9. FLUCONAZOLE [Concomitant]
     Dates: start: 20081021, end: 20081110
  10. CASPOFUNGIN ACETATE [Concomitant]
     Dates: start: 20081031, end: 20081110

REACTIONS (3)
  - MULTI-ORGAN FAILURE [None]
  - NECROTISING ENTEROCOLITIS NEONATAL [None]
  - SEPTIC SHOCK [None]
